FAERS Safety Report 14659767 (Version 2)
Quarter: 2018Q2

REPORT INFORMATION
  Report Type: Spontaneous
  Country: US (occurrence: US)
  Receive Date: 20180320
  Receipt Date: 20180404
  Transmission Date: 20180711
  Serious: Yes (Hospitalization, Other)
  Sender: FDA-Public Use
  Company Number: US-MYLANLABS-2018M1016568

PATIENT
  Age: 78 Year
  Sex: Female

DRUGS (2)
  1. ANAGRELIDE. [Suspect]
     Active Substance: ANAGRELIDE HYDROCHLORIDE
     Indication: ESSENTIAL THROMBOCYTHAEMIA
     Dosage: UNK
     Route: 065
  2. HYDROXYCARBAMIDE [Suspect]
     Active Substance: HYDROXYUREA
     Indication: ESSENTIAL THROMBOCYTHAEMIA

REACTIONS (11)
  - Alopecia [Unknown]
  - Syncope [Recovered/Resolved]
  - Contusion [Recovered/Resolved]
  - Ventricular tachyarrhythmia [Recovered/Resolved]
  - Eyelid injury [Recovered/Resolved]
  - Fall [Recovered/Resolved]
  - Palpitations [Recovered/Resolved]
  - Haematoma [Recovered/Resolved]
  - Face injury [Recovered/Resolved]
  - Facial bones fracture [Recovered/Resolved]
  - Skin haemorrhage [Recovered/Resolved]
